FAERS Safety Report 24283673 (Version 1)
Quarter: 2024Q3

REPORT INFORMATION
  Report Type: Report from Study
  Country: IT (occurrence: IT)
  Receive Date: 20240904
  Receipt Date: 20240904
  Transmission Date: 20241017
  Serious: Yes (Death, Hospitalization, Other)
  Sender: ABBVIE
  Company Number: IT-ABBVIE-5906407

PATIENT
  Age: 80 Year
  Sex: Female

DRUGS (2)
  1. CARBIDOPA\LEVODOPA [Suspect]
     Active Substance: CARBIDOPA\LEVODOPA
     Indication: Parkinson^s disease
     Dosage: DAILY DOSE: 1.718 MG/DAY; MD: 9,5ML+3ML; CR: 4,4ML/H; ED: 3ML
     Route: 050
     Dates: start: 20171010
  2. CARBIDOPA\LEVODOPA [Suspect]
     Active Substance: CARBIDOPA\LEVODOPA

REACTIONS (2)
  - Bradycardia [Fatal]
  - Renal failure [Fatal]

NARRATIVE: CASE EVENT DATE: 20240831
